FAERS Safety Report 10802560 (Version 1)
Quarter: 2015Q1

REPORT INFORMATION
  Report Type: Spontaneous
  Country: SK (occurrence: SK)
  Receive Date: 20150217
  Receipt Date: 20150217
  Transmission Date: 20150721
  Serious: Yes (Death, Hospitalization)
  Sender: FDA-Public Use
  Company Number: SK-SA-2015SA017102

PATIENT
  Sex: Female

DRUGS (1)
  1. CEREZYME [Suspect]
     Active Substance: IMIGLUCERASE
     Indication: GAUCHER^S DISEASE
     Route: 042

REACTIONS (17)
  - Ulcer haemorrhage [Unknown]
  - Sepsis [Unknown]
  - Ischaemic hepatitis [Unknown]
  - Cardiomyopathy [Unknown]
  - Portal vein thrombosis [Unknown]
  - Cardiac failure [Unknown]
  - Portal vein occlusion [Unknown]
  - Abdominal pain [Unknown]
  - Hepatic encephalopathy [Unknown]
  - Biliary abscess [Unknown]
  - Mesenteric venous occlusion [Unknown]
  - Hepatorenal syndrome [Unknown]
  - Oesophageal varices haemorrhage [Unknown]
  - Cardiac disorder [Unknown]
  - Sudden cardiac death [Fatal]
  - Upper gastrointestinal haemorrhage [Unknown]
  - Portal hypertension [Unknown]
